FAERS Safety Report 20657532 (Version 1)
Quarter: 2022Q1

REPORT INFORMATION
  Report Type: Spontaneous
  Country: CA (occurrence: CA)
  Receive Date: 20220331
  Receipt Date: 20220331
  Transmission Date: 20220423
  Serious: Yes (Other)
  Sender: FDA-Public Use
  Company Number: CA-TEVA-2022-CA-2022270

PATIENT
  Sex: Female

DRUGS (1)
  1. LORAZEPAM [Suspect]
     Active Substance: LORAZEPAM
     Indication: Product used for unknown indication
     Route: 048

REACTIONS (5)
  - Abdominal discomfort [Unknown]
  - Depressed mood [Unknown]
  - Drug dependence [Unknown]
  - Product physical consistency issue [Unknown]
  - Product taste abnormal [Unknown]
